FAERS Safety Report 10038048 (Version 4)
Quarter: 2015Q4

REPORT INFORMATION
  Report Type: Spontaneous
  Country: JP (occurrence: JP)
  Receive Date: 20140326
  Receipt Date: 20151208
  Transmission Date: 20160304
  Serious: Yes (Hospitalization)
  Sender: FDA-Public Use
  Company Number: JP-SA-2014SA011106

PATIENT
  Age: 20 Year
  Sex: Male
  Weight: 50.7 kg

DRUGS (4)
  1. SOLOSTAR [Concomitant]
     Active Substance: DEVICE
     Indication: DEVICE THERAPY
  2. LANTUS [Suspect]
     Active Substance: INSULIN GLARGINE
     Indication: TYPE 1 DIABETES MELLITUS
     Dosage: DOSE:14 UNIT(S)
     Route: 058
     Dates: start: 20140123, end: 20140123
  3. INSULIN PEN NOS [Concomitant]
     Active Substance: INSULIN NOS
     Indication: DEVICE THERAPY
  4. HUMALOG [Suspect]
     Active Substance: INSULIN LISPRO
     Indication: TYPE 1 DIABETES MELLITUS
     Dosage: DOSE:5 UNIT(S)
     Route: 058
     Dates: start: 20140123, end: 20140124

REACTIONS (7)
  - Rash [Recovered/Resolved with Sequelae]
  - Dermatitis bullous [Recovered/Resolved with Sequelae]
  - Rash pustular [Recovered/Resolved with Sequelae]
  - Pruritus [Recovered/Resolved with Sequelae]
  - Pigmentation disorder [Unknown]
  - Erythema [Recovered/Resolved with Sequelae]
  - Skin exfoliation [Unknown]

NARRATIVE: CASE EVENT DATE: 20140124
